FAERS Safety Report 10216084 (Version 1)
Quarter: 2014Q2

REPORT INFORMATION
  Report Type: Spontaneous
  Country: US (occurrence: None)
  Receive Date: 20140602
  Receipt Date: 20140602
  Transmission Date: 20141212
  Serious: Yes (Other)
  Sender: FDA-Public Use
  Company Number: 2014P1004479

PATIENT
  Age: 20 Year
  Sex: Female

DRUGS (1)
  1. LEVETIRACETAM [Suspect]
     Indication: GENERALISED TONIC-CLONIC SEIZURE

REACTIONS (2)
  - Paradoxical drug reaction [None]
  - Convulsion [None]
